FAERS Safety Report 7373156-9 (Version None)
Quarter: 2011Q1

REPORT INFORMATION
  Report Type: 
  Country: None (occurrence: None)
  Receive Date: 20110324
  Receipt Date: 20110314
  Transmission Date: 20110831
  Serious: Yes (Death, Hospitalization, Disabling)
  Sender: FDA-Public Use
  Company Number: US-MILLENNIUM PHARMACEUTICALS, INC.-2011-01055

PATIENT
  Sex: Male
  Weight: 90.7 kg

DRUGS (4)
  1. REVLIMID [Suspect]
     Dosage: 15 MG, CYCLIC
     Route: 048
     Dates: start: 20101201, end: 20110101
  2. VELCADE [Suspect]
     Indication: PRODUCT USED FOR UNKNOWN INDICATION
     Dosage: 2.8 MG, CYCLIC
  3. DEXAMETHASONE [Concomitant]
     Indication: PRODUCT USED FOR UNKNOWN INDICATION
     Dosage: 20 MG, BID
     Dates: start: 20100930
  4. REVLIMID [Suspect]
     Indication: MULTIPLE MYELOMA
     Dosage: 25 MG, CYCLIC
     Route: 048
     Dates: start: 20101007, end: 20101201

REACTIONS (9)
  - DIARRHOEA [None]
  - ASTHENIA [None]
  - NEUROPATHY PERIPHERAL [None]
  - CARDIAC DISORDER [None]
  - PULMONARY EMBOLISM [None]
  - DECREASED APPETITE [None]
  - FATIGUE [None]
  - HYPOTENSION [None]
  - BLOOD ELECTROLYTES ABNORMAL [None]
